FAERS Safety Report 8484159-5 (Version None)
Quarter: 2012Q3

REPORT INFORMATION
  Report Type: 
  Country: None (occurrence: None)
  Receive Date: 20120703
  Receipt Date: 20120625
  Transmission Date: 20120928
  Serious: Yes (Hospitalization)
  Sender: FDA-Public Use
  Company Number: US-BAYER-2012-063845

PATIENT
  Age: 34 Year
  Sex: Female
  Weight: 68.98 kg

DRUGS (10)
  1. YASMIN [Suspect]
     Indication: MIGRAINE
  2. RELPAX [Concomitant]
     Indication: MIGRAINE
     Dosage: 40 MG, ONCE AS NEEDED
     Route: 048
  3. ALLEGRA [Concomitant]
     Indication: SEASONAL ALLERGY
     Dosage: 180 MG, HS
     Route: 048
  4. YAZ [Suspect]
  5. SINGULAIR [Concomitant]
     Indication: ASTHMA
     Dosage: 10 MG, HS
     Route: 048
  6. COMBIVENT [Concomitant]
     Dosage: 2 PUFF(S), QID
     Route: 048
  7. DELTASONE [Concomitant]
  8. AFRIN [Concomitant]
  9. MOTRIN [Concomitant]
     Indication: INFLAMMATION
     Dosage: 400 MG, TID
     Route: 048
  10. YASMIN [Suspect]
     Indication: POLYCYSTIC OVARIES

REACTIONS (1)
  - DEEP VEIN THROMBOSIS [None]
